FAERS Safety Report 5800026-7 (Version None)
Quarter: 2008Q3

REPORT INFORMATION
  Report Type: 
  Country: None (occurrence: None)
  Receive Date: 20080703
  Receipt Date: 20080627
  Transmission Date: 20090109
  Serious: Yes (Death, Hospitalization, Other)
  Sender: FDA-Public Use
  Company Number: US-BRISTOL-MYERS SQUIBB COMPANY-14211403

PATIENT
  Age: 63 Year
  Sex: Female

DRUGS (2)
  1. IXEMPRA KIT [Suspect]
     Indication: BREAST CANCER
     Dosage: 1 DOSAGEFORM= 40/M2. STARTED ON 24APR08
     Route: 042
     Dates: start: 20080515, end: 20080515
  2. AVASTIN [Suspect]
     Dates: start: 20080514, end: 20080514

REACTIONS (8)
  - ASTHMA [None]
  - COUGH [None]
  - FATIGUE [None]
  - FEBRILE NEUTROPENIA [None]
  - INFUSION RELATED REACTION [None]
  - LEUKOPENIA [None]
  - SEPSIS [None]
  - UPPER RESPIRATORY TRACT INFECTION [None]
